FAERS Safety Report 17708235 (Version 1)
Quarter: 2020Q2

REPORT INFORMATION
  Report Type: Spontaneous
  Country: US (occurrence: US)
  Receive Date: 20200425
  Receipt Date: 20200425
  Transmission Date: 20200714
  Serious: No
  Sender: FDA-Public Use
  Company Number: US-TEVA-2020-US-1225610

PATIENT
  Sex: Female

DRUGS (2)
  1. QVAR [Suspect]
     Active Substance: BECLOMETHASONE DIPROPIONATE
     Indication: ASTHMA
     Route: 065
  2. QVAR REDIHALER [Suspect]
     Active Substance: BECLOMETHASONE DIPROPIONATE
     Indication: ASTHMA
     Dosage: 40 MCG
     Route: 048

REACTIONS (7)
  - Dyspnoea [Recovering/Resolving]
  - Discomfort [Recovering/Resolving]
  - Bronchial irritation [Recovering/Resolving]
  - Expired product administered [Unknown]
  - Drug ineffective [Unknown]
  - Chest discomfort [Unknown]
  - Product substitution issue [Unknown]
